FAERS Safety Report 20099352 (Version 1)
Quarter: 2021Q4

REPORT INFORMATION
  Report Type: Report from Study
  Country: CA (occurrence: CA)
  Receive Date: 20211122
  Receipt Date: 20211122
  Transmission Date: 20220304
  Serious: Yes (Other)
  Sender: FDA-Public Use
  Company Number: CA-ABBVIE-21K-028-4169116-00

PATIENT
  Sex: Male

DRUGS (1)
  1. HUMIRA [Suspect]
     Active Substance: ADALIMUMAB
     Indication: Crohn^s disease
     Route: 058
     Dates: start: 20180802

REACTIONS (10)
  - Obstruction [Unknown]
  - Frequent bowel movements [Unknown]
  - Diarrhoea [Unknown]
  - Unevaluable event [Unknown]
  - Defaecation urgency [Unknown]
  - Constipation [Unknown]
  - Abdominal pain lower [Unknown]
  - Regurgitation [Not Recovered/Not Resolved]
  - Abscess [Not Recovered/Not Resolved]
  - Nausea [Unknown]
